FAERS Safety Report 21829436 (Version 1)
Quarter: 2023Q1

REPORT INFORMATION
  Report Type: Spontaneous
  Country: US (occurrence: US)
  Receive Date: 20230106
  Receipt Date: 20230106
  Transmission Date: 20230417
  Serious: No
  Sender: FDA-Public Use
  Company Number: US-PADAGIS-2022PAD01196

PATIENT

DRUGS (2)
  1. NYSTATIN [Suspect]
     Active Substance: NYSTATIN
     Indication: Candida infection
     Dosage: 100000 UNIT/G, BID
     Route: 061
  2. GENTAMICIN [Concomitant]
     Active Substance: GENTAMICIN
     Indication: Product used for unknown indication
     Dosage: 12.1 MG, QD (ONCE DAILY)
     Route: 042

REACTIONS (1)
  - Therapy partial responder [Unknown]
